FAERS Safety Report 8844311 (Version 1)
Quarter: 2012Q4

REPORT INFORMATION
  Report Type: Spontaneous
  Country: US (occurrence: None)
  Receive Date: 20121016
  Receipt Date: 20121016
  Transmission Date: 20130627
  Serious: Yes (Life-Threatening)
  Sender: FDA-Public Use
  Company Number: None

PATIENT
  Age: 64 Year
  Sex: Male

DRUGS (2)
  1. METHYLPREDNISOLONE [Suspect]
  2. TORADOL [Suspect]

REACTIONS (7)
  - Malaise [None]
  - Hypoaesthesia [None]
  - Pain [None]
  - Fall [None]
  - Asthenia [None]
  - Dysstasia [None]
  - Dizziness [None]
